FAERS Safety Report 10538535 (Version 2)
Quarter: 2014Q4

REPORT INFORMATION
  Report Type: Spontaneous
  Country: US (occurrence: US)
  Receive Date: 20141023
  Receipt Date: 20141023
  Transmission Date: 20150529
  Serious: Yes (Hospitalization, Other)
  Sender: FDA-Public Use
  Company Number: US-GLAXOSMITHKLINE-A0772170A

PATIENT
  Sex: Male
  Weight: 102 kg

DRUGS (4)
  1. AVANDIA [Suspect]
     Active Substance: ROSIGLITAZONE MALEATE
     Indication: TYPE 2 DIABETES MELLITUS
     Dosage: 8 MG, UNK
     Route: 048
     Dates: start: 200102, end: 20060222
  2. AMARYL [Concomitant]
     Active Substance: GLIMEPIRIDE
     Dates: start: 20010402, end: 20030115
  3. AVANDARYL [Suspect]
     Active Substance: GLIMEPIRIDE\ROSIGLITAZONE MALEATE
     Indication: TYPE 2 DIABETES MELLITUS
     Dosage: 4/2MG
     Route: 065
     Dates: start: 2005, end: 20080501
  4. METFORMIN [Concomitant]
     Active Substance: METFORMIN HYDROCHLORIDE
     Dates: start: 2002, end: 2002

REACTIONS (8)
  - Myocardial infarction [Unknown]
  - Cardiac failure congestive [Unknown]
  - Asthenia [Unknown]
  - Injury [Unknown]
  - Dyspnoea [Unknown]
  - Cardiac disorder [Unknown]
  - Cardiovascular disorder [Unknown]
  - Cerebrovascular accident [Unknown]
